FAERS Safety Report 8081019-9 (Version None)
Quarter: 2012Q1

REPORT INFORMATION
  Report Type: 
  Country: None (occurrence: None)
  Receive Date: 20120130
  Receipt Date: 20120124
  Transmission Date: 20120608
  Serious: Yes (Disabling, Other)
  Sender: FDA-Public Use
  Company Number: PHHY2012FR006427

PATIENT
  Age: 67 Year
  Sex: Female

DRUGS (3)
  1. VERAPAMIL [Concomitant]
     Indication: ARTERIOSPASM CORONARY
  2. ZOLEDRONOC ACID [Suspect]
     Indication: OSTEOPOROSIS
     Dosage: UNK
     Route: 042
     Dates: start: 20111101
  3. PIASCLEDINE [Concomitant]

REACTIONS (9)
  - ERYTHEMA [None]
  - ARTHRALGIA [None]
  - OEDEMA PERIPHERAL [None]
  - HYPERAESTHESIA [None]
  - OEDEMA [None]
  - INFLUENZA LIKE ILLNESS [None]
  - MUSCULOSKELETAL STIFFNESS [None]
  - PYREXIA [None]
  - CHILLS [None]
